FAERS Safety Report 20511008 (Version 1)
Quarter: 2022Q1

REPORT INFORMATION
  Report Type: Spontaneous
  Country: US (occurrence: None)
  Receive Date: 20220223
  Receipt Date: 20220223
  Transmission Date: 20220423
  Serious: Yes (Death)
  Sender: FDA-Public Use
  Company Number: None

PATIENT
  Age: 88 Year
  Sex: Male
  Weight: 60.96 kg

DRUGS (8)
  1. ERIVEDGE [Suspect]
     Active Substance: VISMODEGIB
     Indication: Basal cell carcinoma
     Dosage: FREQUENCY : DAILY;?
     Route: 048
     Dates: start: 20211203, end: 20220122
  2. ADVAIR HFA [Concomitant]
     Active Substance: FLUTICASONE PROPIONATE\SALMETEROL XINAFOATE
  3. MEMANTINE [Concomitant]
     Active Substance: MEMANTINE
  4. QUETIAPINE [Concomitant]
     Active Substance: QUETIAPINE
  5. APAP [Concomitant]
     Active Substance: ACETAMINOPHEN
  6. PLAVIX [Concomitant]
     Active Substance: CLOPIDOGREL BISULFATE
  7. LEVOCARNITINE [Concomitant]
     Active Substance: LEVOCARNITINE
  8. VITAMIN D3 [Concomitant]
     Active Substance: CHOLECALCIFEROL

REACTIONS (2)
  - Fall [None]
  - Hip fracture [None]

NARRATIVE: CASE EVENT DATE: 20220122
